FAERS Safety Report 9162252 (Version 3)
Quarter: 2013Q3

REPORT INFORMATION
  Report Type: Spontaneous
  Country: US (occurrence: US)
  Receive Date: 20130314
  Receipt Date: 20130925
  Transmission Date: 20140515
  Serious: Yes (Other)
  Sender: FDA-Public Use
  Company Number: US-BAYER-2013-028417

PATIENT
  Age: 32 Year
  Sex: Female
  Weight: 69 kg

DRUGS (2)
  1. YAZ [Suspect]
  2. YASMIN [Suspect]

REACTIONS (4)
  - Deep vein thrombosis [Recovered/Resolved]
  - Local swelling [None]
  - Erythema [None]
  - Arthralgia [None]
